FAERS Safety Report 4471749-X (Version None)
Quarter: 2004Q4

REPORT INFORMATION
  Report Type: 
  Country: None (occurrence: None)
  Receive Date: 20041006
  Receipt Date: 20040924
  Transmission Date: 20050328
  Serious: Yes (Disabling)
  Sender: FDA-Public Use
  Company Number: 2004233269GB

PATIENT
  Age: 71 Year
  Sex: Male

DRUGS (10)
  1. LONITEN [Suspect]
     Indication: HYPERTENSION
     Dosage: 10 MG, TID, ORAL
     Route: 048
     Dates: start: 19810909
  2. ATENOLOL [Concomitant]
  3. ALLOPURINOL [Concomitant]
  4. FRUSEMIDE [Concomitant]
  5. CO-PROXAMOL (DEXTROPROPOXYPHENE HYDROCHLORIDE) [Concomitant]
  6. AMILORIDE [Concomitant]
  7. ASPIRIN [Concomitant]
  8. DOXAZOSIN (DOXAZOSIN) [Concomitant]
  9. METFORMIN HCL [Concomitant]
  10. AMARYL [Concomitant]

REACTIONS (2)
  - NASAL DISORDER [None]
  - SKIN HYPERTROPHY [None]
